FAERS Safety Report 16785554 (Version 11)
Quarter: 2021Q4

REPORT INFORMATION
  Report Type: Spontaneous
  Country: US (occurrence: US)
  Receive Date: 20190909
  Receipt Date: 20211122
  Transmission Date: 20220303
  Serious: Yes (Other)
  Sender: FDA-Public Use
  Company Number: US-PFIZER INC-2019384470

PATIENT
  Age: 91 Year
  Sex: Female
  Weight: 70 kg

DRUGS (3)
  1. XELJANZ XR [Suspect]
     Active Substance: TOFACITINIB CITRATE
     Indication: Rheumatoid arthritis
     Dosage: 11 MG, 1X/DAY
     Route: 048
     Dates: start: 201908
  2. METHOTREXATE SODIUM [Concomitant]
     Active Substance: METHOTREXATE SODIUM
     Dosage: UNK
  3. IBANDRONATE SODIUM [Concomitant]
     Active Substance: IBANDRONATE SODIUM
     Indication: Bone disorder
     Dosage: UNK

REACTIONS (12)
  - COVID-19 [Unknown]
  - Condition aggravated [Unknown]
  - Drug ineffective [Unknown]
  - Weight fluctuation [Unknown]
  - Memory impairment [Unknown]
  - Body height decreased [Unknown]
  - Hair texture abnormal [Unknown]
  - Oropharyngeal pain [Unknown]
  - Rhinorrhoea [Unknown]
  - Malaise [Unknown]
  - Back pain [Unknown]
  - Hypoacusis [Not Recovered/Not Resolved]

NARRATIVE: CASE EVENT DATE: 20190101
